FAERS Safety Report 8939691 (Version 2)
Quarter: 2013Q1

REPORT INFORMATION
  Report Type: Spontaneous
  Country: BR (occurrence: BR)
  Receive Date: 20121201
  Receipt Date: 20130205
  Transmission Date: 20140127
  Serious: Yes (Other)
  Sender: FDA-Public Use
  Company Number: BR-ACCORD-015360

PATIENT
  Age: 56 Year
  Sex: Female
  Weight: 67.65 kg

DRUGS (5)
  1. ONDANSETRON [Concomitant]
     Route: 042
     Dates: start: 20121112, end: 20121112
  2. DIPHENHYDRAMINE [Concomitant]
     Route: 042
     Dates: start: 20121112, end: 20121112
  3. PACLITAXEL [Suspect]
     Indication: BREAST CANCER
     Dosage: PACLITAXEL 175 MG/M?
     Route: 042
     Dates: start: 20121015
  4. RANITIDINE [Concomitant]
     Route: 042
     Dates: start: 20121112, end: 20121112
  5. DEXAMETHASONE [Concomitant]
     Route: 042
     Dates: start: 20121112, end: 20121112

REACTIONS (3)
  - Feeling hot [Recovered/Resolved]
  - Hyperaemia [Recovered/Resolved]
  - Dyspnoea [Recovered/Resolved]
